FAERS Safety Report 25973157 (Version 2)
Quarter: 2025Q4

REPORT INFORMATION
  Report Type: Spontaneous
  Country: US (occurrence: US)
  Receive Date: 20251029
  Receipt Date: 20251106
  Transmission Date: 20260118
  Serious: No
  Sender: ORBION PHARMACEUTICALS PRIVATE LIMITED
  Company Number: US-OrBion-000010

PATIENT
  Sex: Male

DRUGS (1)
  1. MODAFINIL [Suspect]
     Active Substance: MODAFINIL
     Indication: Sleep apnoea syndrome
     Route: 048

REACTIONS (1)
  - Drug ineffective [Not Recovered/Not Resolved]
